FAERS Safety Report 8460190-0 (Version None)
Quarter: 2012Q2

REPORT INFORMATION
  Report Type: 
  Country: None (occurrence: None)
  Receive Date: 20120622
  Receipt Date: 20120618
  Transmission Date: 20120825
  Serious: Yes (Death)
  Sender: FDA-Public Use
  Company Number: US-ABBOTT-12P-163-0947277-00

PATIENT
  Sex: Male
  Weight: 65.83 kg

DRUGS (10)
  1. ASACOL [Concomitant]
     Indication: CROHN'S DISEASE
     Dates: end: 20120601
  2. MULTI-VITAMIN [Concomitant]
     Indication: VITAMIN SUPPLEMENTATION
     Dates: end: 20120601
  3. HUMIRA [Suspect]
     Indication: CROHN'S DISEASE
     Dosage: (160 MG, LOADING DOSE)
     Dates: start: 20120525, end: 20120525
  4. MERCAPTOPURINE [Concomitant]
     Indication: CROHN'S DISEASE
     Dates: end: 20120601
  5. NEXIUM [Concomitant]
     Indication: GASTROOESOPHAGEAL REFLUX DISEASE
     Dosage: FOR YEARS
     Dates: end: 20120601
  6. LIPITOR [Concomitant]
     Indication: BLOOD CHOLESTEROL INCREASED
     Dates: end: 20120601
  7. VITAMIN D [Concomitant]
     Indication: VITAMIN SUPPLEMENTATION
     Dates: end: 20120601
  8. PREDNISONE TAB [Concomitant]
     Indication: CROHN'S DISEASE
     Dates: start: 20120401, end: 20120601
  9. HUMIRA [Suspect]
     Dosage: (80 MG, SECOND LOADING DOSE)
     Dates: start: 20120608, end: 20120608
  10. IRON PILLS [Concomitant]
     Indication: MINERAL SUPPLEMENTATION
     Dates: end: 20120601

REACTIONS (6)
  - CARDIAC DISORDER [None]
  - RESPIRATORY ARREST [None]
  - CROHN'S DISEASE [None]
  - DIVERTICULITIS [None]
  - PAINFUL DEFAECATION [None]
  - DYSPNOEA [None]
